FAERS Safety Report 14166000 (Version 1)
Quarter: 2017Q4

REPORT INFORMATION
  Report Type: Spontaneous
  Country: US (occurrence: US)
  Receive Date: 20171106
  Receipt Date: 20171106
  Transmission Date: 20180321
  Serious: Yes (Death)
  Sender: FDA-Public Use
  Company Number: None

PATIENT
  Sex: Female
  Weight: 73.8 kg

DRUGS (11)
  1. METROPOLE [Concomitant]
  2. VICTOZA [Suspect]
     Active Substance: LIRAGLUTIDE
     Indication: BLOOD GLUCOSE INCREASED
     Dosage: ?          OTHER ROUTE:INJECTION?
     Dates: start: 20140328, end: 20140425
  3. SELENIUM [Concomitant]
     Active Substance: SELENIUM
  4. METFORMIN [Concomitant]
     Active Substance: METFORMIN HYDROCHLORIDE
  5. VITAMIN B12 [Concomitant]
     Active Substance: CYANOCOBALAMIN
  6. VITAMIN D3 [Concomitant]
     Active Substance: CHOLECALCIFEROL
  7. IRON [Concomitant]
     Active Substance: IRON
  8. LISINOPRIL. [Concomitant]
     Active Substance: LISINOPRIL
  9. ANTIOXIDANT VITAMINS [Concomitant]
  10. NOVOLOG [Concomitant]
     Active Substance: INSULIN ASPART
  11. FOSAMAX [Concomitant]
     Active Substance: ALENDRONATE SODIUM

REACTIONS (7)
  - Sepsis [None]
  - Blood glucose decreased [None]
  - Chromaturia [None]
  - Platelet count decreased [None]
  - Jaundice [None]
  - Pancreatic carcinoma [None]
  - Hepatic enzyme increased [None]

NARRATIVE: CASE EVENT DATE: 20140418
